FAERS Safety Report 17042409 (Version 1)
Quarter: 2019Q4

REPORT INFORMATION
  Report Type: Spontaneous
  Country: US (occurrence: US)
  Receive Date: 20191117
  Receipt Date: 20191117
  Transmission Date: 20200122
  Serious: Yes (Life-Threatening)
  Sender: FDA-Public Use
  Company Number: None

PATIENT
  Sex: Female

DRUGS (1)
  1. IMPLANON [Suspect]
     Active Substance: ETONOGESTREL

REACTIONS (6)
  - Headache [None]
  - Implantation complication [None]
  - Heart rate increased [None]
  - Implant site haemorrhage [None]
  - Implant site pruritus [None]
  - Chest pain [None]
